FAERS Safety Report 15719981 (Version 1)
Quarter: 2018Q4

REPORT INFORMATION
  Report Type: Report from Study
  Country: DE (occurrence: DE)
  Receive Date: 20181213
  Receipt Date: 20181213
  Transmission Date: 20190205
  Serious: Yes (Other)
  Sender: FDA-Public Use
  Company Number: DE-GILEAD-2018-0380052

PATIENT
  Age: 74 Year
  Sex: Male
  Weight: 78 kg

DRUGS (3)
  1. SOFOSBUVIR [Suspect]
     Active Substance: SOFOSBUVIR
     Indication: CHRONIC HEPATITIS C
     Dosage: 400 MG, QD
     Route: 048
     Dates: start: 20140912, end: 20141204
  2. DACLATASVIR DIHYDROCHLORIDE [Suspect]
     Active Substance: DACLATASVIR DIHYDROCHLORIDE
     Indication: CHRONIC HEPATITIS C
     Dosage: 60 MG, QD
     Route: 048
     Dates: start: 20140912, end: 20141204
  3. MARCUMAR [Concomitant]
     Active Substance: PHENPROCOUMON
     Indication: CARDIOVASCULAR DISORDER
     Dosage: AS NEEDED
     Route: 065

REACTIONS (3)
  - Fatigue [Unknown]
  - Thrombocytopenia [Unknown]
  - Leukopenia [Unknown]

NARRATIVE: CASE EVENT DATE: 20181107
